FAERS Safety Report 14919660 (Version 1)
Quarter: 2018Q2

REPORT INFORMATION
  Report Type: Spontaneous
  Country: GB (occurrence: GB)
  Receive Date: 20180521
  Receipt Date: 20180521
  Transmission Date: 20180711
  Serious: Yes (Other)
  Sender: FDA-Public Use
  Company Number: GB-PFIZER INC-2018199985

PATIENT
  Age: 36 Year
  Sex: Female
  Weight: 89 kg

DRUGS (8)
  1. CITALOPRAM [Concomitant]
     Active Substance: CITALOPRAM HYDROBROMIDE
     Dosage: 1 DF, 1X/DAY
     Dates: start: 20171206
  2. PROMETHAZINE HYDROCHLORIDE. [Concomitant]
     Active Substance: PROMETHAZINE HYDROCHLORIDE
     Dosage: UNK (TAKE ONE OR TWO AT NIGHT)
     Dates: start: 20180119, end: 20180202
  3. AMOXICILLIN. [Concomitant]
     Active Substance: AMOXICILLIN
     Dosage: 3 DF, 1X/DAY
     Dates: start: 20180313, end: 20180320
  4. FULTIUM D3 [Concomitant]
     Active Substance: CHOLECALCIFEROL
     Dosage: 2 DF, 1X/DAY
     Dates: start: 20180313, end: 20180314
  5. DIAZEPAM. [Concomitant]
     Active Substance: DIAZEPAM
     Dosage: 3 DF, 1X/DAY
     Dates: start: 20180208, end: 20180210
  6. DOXYCYCLINE. [Concomitant]
     Active Substance: DOXYCYCLINE
     Dosage: UNK (TWO NOW THEN ONE DAILY.)
     Dates: start: 20180329
  7. PREGABALIN. [Suspect]
     Active Substance: PREGABALIN
     Dosage: UNK
     Dates: start: 20180329
  8. COCODAMOL [Concomitant]
     Active Substance: ACETAMINOPHEN\CODEINE PHOSPHATE
     Dosage: 4 DF, 1X/DAY
     Dates: start: 20171206

REACTIONS (1)
  - Seizure [Recovered/Resolved]

NARRATIVE: CASE EVENT DATE: 20180329
